FAERS Safety Report 7770008-7 (Version None)
Quarter: 2011Q3

REPORT INFORMATION
  Report Type: 
  Country: None (occurrence: None)
  Receive Date: 20110922
  Receipt Date: 20100412
  Transmission Date: 20111222
  Serious: Yes (Hospitalization)
  Sender: FDA-Public Use
  Company Number: US-ASTRAZENECA-2009UW16556

PATIENT
  Sex: Male

DRUGS (4)
  1. EFFEXOR XR [Concomitant]
     Dosage: 150 MG TO 300 MG
     Dates: start: 20060704
  2. SEROQUEL [Suspect]
     Route: 048
     Dates: start: 20061018
  3. ZYPREXA [Concomitant]
     Dates: start: 20060704
  4. ALLOPURINOL [Concomitant]
     Dates: start: 20070212

REACTIONS (3)
  - DIABETES MELLITUS INADEQUATE CONTROL [None]
  - VISION BLURRED [None]
  - DIABETES MELLITUS [None]
